FAERS Safety Report 4826159-X (Version None)
Quarter: 2005Q4

REPORT INFORMATION
  Report Type: 
  Country: None (occurrence: None)
  Receive Date: 20051109
  Receipt Date: 20051102
  Transmission Date: 20060501
  Serious: Yes (Hospitalization)
  Sender: FDA-Public Use
  Company Number: CHPA2005US05597

PATIENT
  Age: 83 Year
  Sex: Female
  Weight: 59 kg

DRUGS (1)
  1. FERROUS SULFATE TAB [Suspect]
     Dosage: SWALLOWED BLISTER, ONCE/SINGLE, ORAL
     Route: 048
     Dates: start: 20051031

REACTIONS (4)
  - DRUG ADMINISTRATION ERROR [None]
  - FOREIGN BODY TRAUMA [None]
  - POST-TRAUMATIC PAIN [None]
  - THERAPY NON-RESPONDER [None]
